FAERS Safety Report 4755232-X (Version None)
Quarter: 2005Q3

REPORT INFORMATION
  Report Type: 
  Country: None (occurrence: None)
  Receive Date: 20050829
  Receipt Date: 20050311
  Transmission Date: 20060218
  Serious: Yes (Other)
  Sender: FDA-Public Use
  Company Number: US-MERCK-0503USA02616

PATIENT
  Age: 54 Year
  Sex: Male
  Weight: 175 kg

DRUGS (8)
  1. LOPRESSOR [Concomitant]
     Route: 065
  2. TOPROL-XL [Concomitant]
     Route: 065
  3. VIOXX [Suspect]
     Indication: ARTHRITIS
     Route: 048
     Dates: start: 20010101, end: 20050101
  4. ACCUPRIL [Concomitant]
     Route: 048
     Dates: start: 20000208, end: 20031201
  5. AMITRIPTYLIN [Concomitant]
     Route: 065
  6. DARVOCET-N 100 [Concomitant]
     Route: 048
     Dates: start: 20010209, end: 20040301
  7. IBUPROFEN [Concomitant]
     Route: 065
     Dates: start: 20010101
  8. IMDUR [Concomitant]
     Route: 065

REACTIONS (4)
  - CEREBROVASCULAR ACCIDENT [None]
  - GASTROOESOPHAGEAL REFLUX DISEASE [None]
  - MYOCARDIAL INFARCTION [None]
  - RENAL FAILURE [None]
